FAERS Safety Report 7837484-2 (Version None)
Quarter: 2011Q4

REPORT INFORMATION
  Report Type: 
  Country: None (occurrence: None)
  Receive Date: 20111024
  Receipt Date: 20110407
  Transmission Date: 20120403
  Serious: No
  Sender: FDA-Public Use
  Company Number: US-ABBOTT-11P-163-0717786-00

PATIENT
  Sex: Female
  Weight: 90.8 kg

DRUGS (5)
  1. LUPRON DEPOT [Suspect]
     Indication: UTERINE LEIOMYOMA
  2. MICARDIS [Concomitant]
     Indication: HYPERTENSION
  3. HYDROCODONE BITARTRATE [Concomitant]
     Indication: ENDOMETRIOSIS
  4. DOSTINEX [Concomitant]
     Indication: BLOOD PROLACTIN INCREASED
  5. LUPRON DEPOT [Suspect]
     Indication: ENDOMETRIOSIS
     Dates: start: 20110101

REACTIONS (2)
  - UTERINE SPASM [None]
  - DRUG INEFFECTIVE [None]
